FAERS Safety Report 5643004-3 (Version None)
Quarter: 2008Q1

REPORT INFORMATION
  Report Type: 
  Country: None (occurrence: None)
  Receive Date: 20080228
  Receipt Date: 20080222
  Transmission Date: 20080703
  Serious: Yes (Death)
  Sender: FDA-Public Use
  Company Number: B0510148A

PATIENT
  Age: 65 Year
  Sex: Male

DRUGS (4)
  1. AUGMENTIN '125' [Suspect]
     Indication: DRUG USE FOR UNKNOWN INDICATION
     Dosage: 4400MG PER DAY
     Route: 042
     Dates: start: 20080214, end: 20080214
  2. NIMBEX [Suspect]
     Indication: DRUG USE FOR UNKNOWN INDICATION
     Dosage: 20MG PER DAY
     Route: 042
     Dates: start: 20080214, end: 20080214
  3. POVIDONE [Suspect]
     Indication: DRUG USE FOR UNKNOWN INDICATION
     Dates: start: 20080214, end: 20080214
  4. ANAESTHETIC [Concomitant]
     Indication: HERNIA REPAIR

REACTIONS (1)
  - ANAPHYLACTIC SHOCK [None]
